FAERS Safety Report 5201077-6 (Version None)
Quarter: 2007Q1

REPORT INFORMATION
  Report Type: 
  Country: None (occurrence: None)
  Receive Date: 20070108
  Receipt Date: 20070104
  Transmission Date: 20070707
  Serious: Yes (Hospitalization)
  Sender: FDA-Public Use
  Company Number: US-ELI_LILLY_AND_COMPANY-US200609006454

PATIENT
  Age: 47 Year
  Sex: Female
  Weight: 108 kg

DRUGS (13)
  1. QUETIAPINE FUMARATE [Concomitant]
     Dates: start: 20030101
  2. CLOZAPINE [Concomitant]
     Dates: start: 20030101, end: 20040101
  3. RISPERIDONE [Concomitant]
     Dates: start: 19990101, end: 20000101
  4. CARBAMAZEPINE [Concomitant]
     Dates: start: 20001101
  5. DIVALPROEX SODIUM [Concomitant]
     Dates: start: 20040301, end: 20040701
  6. BUPROPION HCL [Concomitant]
     Dates: start: 20030101
  7. VENLAFAXINE HCL [Concomitant]
     Dates: start: 20040301
  8. ATENOLOL [Concomitant]
     Dates: start: 19990101
  9. METOPROLOL SUCCINATE [Concomitant]
     Dates: start: 20020101, end: 20030101
  10. LASIX [Concomitant]
     Dates: start: 20030101
  11. ZYPREXA [Suspect]
     Dosage: 7.5 MG, UNK
     Route: 065
     Dates: start: 19990820, end: 19990920
  12. ZYPREXA [Suspect]
     Dosage: 7.5 MG, UNK
     Dates: start: 20000920
  13. ZYPREXA [Suspect]
     Dosage: 7.5 MG, UNK
     Dates: start: 20060401

REACTIONS (8)
  - BLOOD CHOLESTEROL ABNORMAL [None]
  - BLOOD TRIGLYCERIDES INCREASED [None]
  - CATHETERISATION CARDIAC [None]
  - CEREBROVASCULAR DISORDER [None]
  - DIABETES MELLITUS [None]
  - HYPERGLYCAEMIA [None]
  - HYPERTENSION [None]
  - MYOCARDIAL ISCHAEMIA [None]
